FAERS Safety Report 13125204 (Version 1)
Quarter: 2017Q1

REPORT INFORMATION
  Report Type: Spontaneous
  Country: US (occurrence: US)
  Receive Date: 20170117
  Receipt Date: 20170117
  Transmission Date: 20170428
  Serious: No
  Sender: FDA-Public Use
  Company Number: None

PATIENT
  Age: 67 Year
  Sex: Female
  Weight: 62.1 kg

DRUGS (7)
  1. MULTIVITAMIN [Concomitant]
     Active Substance: VITAMINS
  2. CODEINE IN THE NAME [Suspect]
     Active Substance: CODEINE
     Indication: NASOPHARYNGITIS
     Dosage: QUANTITY:1 TEASPOON(S);?
     Route: 048
     Dates: start: 20170113, end: 20170117
  3. OMEGA 3 [Concomitant]
     Active Substance: OMEGA-3 FATTY ACIDS
  4. ATENOLOL. [Concomitant]
     Active Substance: ATENOLOL
  5. CALCIUM [Concomitant]
     Active Substance: CALCIUM
  6. ANTIHISTAMINES [Concomitant]
     Active Substance: ANTIHISTAMINES NOS
  7. VITAMINS C [Concomitant]

REACTIONS (2)
  - Hallucination [None]
  - Insomnia [None]

NARRATIVE: CASE EVENT DATE: 20170117
